FAERS Safety Report 13051722 (Version 4)
Quarter: 2017Q1

REPORT INFORMATION
  Report Type: Spontaneous
  Country: JP (occurrence: JP)
  Receive Date: 20161221
  Receipt Date: 20170201
  Transmission Date: 20170428
  Serious: Yes (Other)
  Sender: FDA-Public Use
  Company Number: JP-JNJFOC-20151002742

PATIENT

DRUGS (4)
  1. PEGINTERFERON ALFA-2B [Suspect]
     Active Substance: PEGINTERFERON ALFA-2B
     Indication: CHRONIC HEPATITIS C
     Route: 065
  2. SOVRIAD [Suspect]
     Active Substance: SIMEPREVIR
     Indication: CHRONIC HEPATITIS C
     Route: 048
  3. PEGINTERFERON ALFA-2A [Suspect]
     Active Substance: PEGINTERFERON ALFA-2A
     Indication: CHRONIC HEPATITIS C
     Route: 058
  4. RIBAVIRIN. [Suspect]
     Active Substance: RIBAVIRIN
     Indication: CHRONIC HEPATITIS C
     Dosage: 600 MG/DAY IF WEIGHT LESS THAN 60 KG; 800 MG/DAY: 60-80 KG; 1000 MG/DAY:WEIGHT GREATER THAN 80 KG
     Route: 048

REACTIONS (6)
  - Anaemia [Unknown]
  - Remission not achieved [Unknown]
  - Depressed mood [Unknown]
  - Adverse event [Unknown]
  - Sleep disorder [Unknown]
  - Insomnia [Unknown]
